FAERS Safety Report 17047019 (Version 1)
Quarter: 2019Q4

REPORT INFORMATION
  Report Type: Spontaneous
  Country: HR (occurrence: HR)
  Receive Date: 20191119
  Receipt Date: 20191119
  Transmission Date: 20200122
  Serious: Yes (Other)
  Sender: FDA-Public Use
  Company Number: HR-EMD SERONO-E2B_90072427

PATIENT
  Age: 60 Year
  Sex: Male

DRUGS (1)
  1. REBIF [Suspect]
     Active Substance: INTERFERON BETA-1A
     Indication: RELAPSING-REMITTING MULTIPLE SCLEROSIS
     Dosage: PREFILLED SYRINGE.
     Route: 058
     Dates: start: 201906, end: 20191014

REACTIONS (5)
  - Erythema induratum [Recovered/Resolved]
  - Influenza like illness [Recovered/Resolved]
  - Gamma-glutamyltransferase increased [Unknown]
  - Application site erythema [Recovered/Resolved]
  - Thrombocytopenia [Recovered/Resolved]

NARRATIVE: CASE EVENT DATE: 201906
